FAERS Safety Report 8540221-X (Version None)
Quarter: 2012Q3

REPORT INFORMATION
  Report Type: 
  Country: None (occurrence: None)
  Receive Date: 20120726
  Receipt Date: 20120713
  Transmission Date: 20120928
  Serious: Yes (Other)
  Sender: FDA-Public Use
  Company Number: RU-TEVA-349077ISR

PATIENT
  Sex: Female

DRUGS (1)
  1. COPAXONE [Suspect]
     Indication: MULTIPLE SCLEROSIS
     Dosage: 20 MILLIGRAM;
     Route: 058

REACTIONS (6)
  - GOITRE [None]
  - THYROID DISORDER [None]
  - HYPOTHYROIDISM [None]
  - ANTI-THYROID ANTIBODY POSITIVE [None]
  - THYROID NEOPLASM [None]
  - CONGENITAL HYPOTHYROIDISM [None]
